FAERS Safety Report 10783829 (Version 1)
Quarter: 2015Q1

REPORT INFORMATION
  Report Type: Spontaneous
  Country: US (occurrence: US)
  Receive Date: 20150210
  Receipt Date: 20150210
  Transmission Date: 20150721
  Serious: Yes (Hospitalization)
  Sender: FDA-Public Use
  Company Number: US-TAKEDA-2015TUS001457

PATIENT
  Age: 54 Year
  Sex: Female

DRUGS (3)
  1. CONTRAVE [Suspect]
     Active Substance: BUPROPION HYDROCHLORIDE\NALTREXONE HYDROCHLORIDE
     Indication: OVERWEIGHT
     Dosage: 1 TABLET DAILY IN THE MORNING
     Route: 048
  2. UNKNOWN ANXIETY MEDICATION [Concomitant]
     Indication: ANXIETY
     Dosage: UNK
     Route: 048
  3. UNKNOWN SLEEPING MEDICATION [Concomitant]
     Indication: SLEEP DISORDER
     Dosage: UNK
     Route: 048

REACTIONS (1)
  - Dermatitis allergic [Recovered/Resolved]
